FAERS Safety Report 5666562-1 (Version None)
Quarter: 2008Q1

REPORT INFORMATION
  Report Type: 
  Country: None (occurrence: None)
  Receive Date: 20080315
  Receipt Date: 20080116
  Transmission Date: 20080703
  Serious: No
  Sender: FDA-Public Use
  Company Number: US-ABBOTT-07P-163-0431076-00

PATIENT
  Sex: Female
  Weight: 81.72 kg

DRUGS (5)
  1. HUMIRA [Suspect]
     Indication: CROHN'S DISEASE
     Route: 058
     Dates: start: 20070901, end: 20071219
  2. IMODIUM [Concomitant]
     Indication: DIARRHOEA
     Route: 048
  3. IBUPROFEN [Concomitant]
     Indication: PAIN
     Route: 048
  4. SIMVASTATIN [Concomitant]
     Indication: BLOOD CHOLESTEROL INCREASED
     Route: 048
     Dates: start: 20070901
  5. MESALAMINE [Concomitant]
     Indication: CROHN'S DISEASE

REACTIONS (9)
  - CROHN'S DISEASE [None]
  - DIARRHOEA [None]
  - DIARRHOEA HAEMORRHAGIC [None]
  - DRUG INEFFECTIVE [None]
  - HAEMATOCHEZIA [None]
  - INJECTION SITE REACTION [None]
  - MUSCLE SPASMS [None]
  - PAIN [None]
  - RASH [None]
